FAERS Safety Report 24669614 (Version 1)
Quarter: 2024Q4

REPORT INFORMATION
  Report Type: Spontaneous
  Country: JP (occurrence: JP)
  Receive Date: 20241127
  Receipt Date: 20241127
  Transmission Date: 20250114
  Serious: Yes (Other)
  Sender: MYLAN
  Company Number: JP-MYE-2024M1105726AA

PATIENT
  Age: 83 Year
  Sex: Female

DRUGS (11)
  1. ERYTHROCIN STEARATE [Suspect]
     Active Substance: ERYTHROMYCIN STEARATE
     Indication: Bronchiectasis
     Dosage: 100 MILLIGRAM, QD
     Route: 048
     Dates: start: 20220117, end: 20220523
  2. CARBOCYSTEINE [Suspect]
     Active Substance: CARBOCYSTEINE
     Indication: Bronchiectasis
     Dosage: UNK
     Route: 048
     Dates: start: 20220117
  3. AMBROXOL [Concomitant]
     Active Substance: AMBROXOL
     Indication: Bronchiectasis
     Dosage: UNK
     Route: 048
     Dates: start: 20220117, end: 2022
  4. XALATAN [Concomitant]
     Active Substance: LATANOPROST
     Indication: Glaucoma
     Dosage: UNK
     Route: 047
  5. HYALURONATE SODIUM [Concomitant]
     Active Substance: HYALURONATE SODIUM
     Indication: Glaucoma
     Dosage: UNK
     Route: 047
  6. CINAL [Concomitant]
     Indication: Product used for unknown indication
     Dosage: 90 DAYS
     Route: 048
     Dates: start: 20220228
  7. YOKUININ DAIICHI [Concomitant]
     Indication: Product used for unknown indication
     Dosage: 90 DAYS
     Route: 048
     Dates: start: 20220228
  8. BETAMETHASONE DIPROPIONATE [Concomitant]
     Active Substance: BETAMETHASONE DIPROPIONATE
     Indication: Product used for unknown indication
     Dosage: 90 DAYS
     Route: 065
     Dates: start: 20220228
  9. CARPRONIUM CHLORIDE [Concomitant]
     Active Substance: CARPRONIUM CHLORIDE
     Indication: Product used for unknown indication
     Dosage: 90 DAYS
     Route: 065
     Dates: start: 20220228
  10. CLOTIAZEPAM [Concomitant]
     Active Substance: CLOTIAZEPAM
     Indication: Insomnia
     Dosage: UNK UNK, PRN
     Route: 048
  11. LOXOPROFEN [Concomitant]
     Active Substance: LOXOPROFEN
     Indication: Headache
     Dosage: UNK UNK, PRN
     Route: 048

REACTIONS (4)
  - Renal impairment [Unknown]
  - Oedema [Not Recovered/Not Resolved]
  - Weight increased [Unknown]
  - Urine output decreased [Unknown]

NARRATIVE: CASE EVENT DATE: 20220101
